FAERS Safety Report 5839647-4 (Version None)
Quarter: 2008Q3

REPORT INFORMATION
  Report Type: 
  Country: None (occurrence: None)
  Receive Date: 20080811
  Receipt Date: 20080729
  Transmission Date: 20090109
  Serious: Yes (Death)
  Sender: FDA-Public Use
  Company Number: JP-BAYER-200811581BYL

PATIENT
  Age: 73 Year
  Sex: Male
  Weight: 61 kg

DRUGS (17)
  1. NEXAVAR [Suspect]
     Indication: RENAL CELL CARCINOMA STAGE IV
     Dosage: TOTAL DAILY DOSE: 800 MG  UNIT DOSE: 200 MG
     Route: 048
     Dates: start: 20080609, end: 20080706
  2. AMLODIPINE BESYLATE [Concomitant]
     Indication: HYPERTENSION
     Dosage: TOTAL DAILY DOSE: 5 MG  UNIT DOSE: 5 MG
     Route: 048
     Dates: start: 19981212, end: 20080709
  3. BLOPRESS [Concomitant]
     Indication: HYPERTENSION
     Dosage: TOTAL DAILY DOSE: 8 MG  UNIT DOSE: 8 MG
     Route: 048
     Dates: start: 19981218, end: 20080709
  4. ZYLORIC [Concomitant]
     Dosage: TOTAL DAILY DOSE: 100 MG  UNIT DOSE: 100 MG
     Route: 048
     Dates: start: 20001027, end: 20080709
  5. MUCOSTA [Concomitant]
     Dosage: AS USED: 300 MG  UNIT DOSE: 100 MG
     Route: 048
     Dates: start: 19981028, end: 20080609
  6. UFT [Concomitant]
     Indication: RENAL CELL CARCINOMA STAGE IV
     Dosage: AS USED: 600 MG  UNIT DOSE: 200 MG
     Route: 048
     Dates: start: 20070407, end: 20080602
  7. ARGAMATE [Concomitant]
     Dosage: AS USED: 75 G  UNIT DOSE: 25 G
     Route: 048
     Dates: start: 20080620, end: 20080707
  8. OXYCONTIN [Concomitant]
     Dosage: AS USED: 10 MG  UNIT DOSE: 5 MG
     Route: 048
     Dates: start: 20080624, end: 20080702
  9. MAGMITT [Concomitant]
     Dosage: AS USED: 990 MG  UNIT DOSE: 330 MG
     Route: 048
     Dates: start: 20080624, end: 20080709
  10. OXINORM [Concomitant]
     Dosage: TOTAL DAILY DOSE: 5 MG  UNIT DOSE: 5 MG
     Route: 048
     Dates: start: 20080627, end: 20080701
  11. NITRAZEPAM [Concomitant]
     Dosage: TOTAL DAILY DOSE: 3 MG  UNIT DOSE: 3 MG
     Route: 048
     Dates: start: 20080630, end: 20080709
  12. SERENACE [Concomitant]
     Dosage: TOTAL DAILY DOSE: 0.7 MG  UNIT DOSE: 0.7 MG
     Route: 048
     Dates: start: 20080630, end: 20080709
  13. MYSER [Concomitant]
     Indication: DRUG ERUPTION
     Route: 061
     Dates: start: 20080702, end: 20080709
  14. CELESTAMINE TAB [Concomitant]
     Dosage: TOTAL DAILY DOSE: 1 DF  UNIT DOSE: 1 DF
     Route: 048
     Dates: start: 20080702, end: 20080709
  15. MS CONTIN [Concomitant]
     Dosage: AS USED: 20 MG  UNIT DOSE: 10 MG
     Route: 048
     Dates: start: 20080702, end: 20080707
  16. OPSO [Concomitant]
     Dosage: TOTAL DAILY DOSE: 5 MG  UNIT DOSE: 5 MG
     Route: 048
     Dates: start: 20080702, end: 20080709
  17. FENTANYL TRANSDERMAL SYSTEM [Concomitant]
     Dosage: AS USED: 7.5 MG  UNIT DOSE: 2.5 MG
     Route: 062
     Dates: start: 20080708, end: 20080709

REACTIONS (2)
  - DRUG ERUPTION [None]
  - RENAL CELL CARCINOMA STAGE IV [None]
